FAERS Safety Report 9323334 (Version 1)
Quarter: 2013Q2

REPORT INFORMATION
  Report Type: Report from Study
  Country: JP (occurrence: JP)
  Receive Date: 20130603
  Receipt Date: 20130603
  Transmission Date: 20140414
  Serious: Yes (Congenital Anomaly)
  Sender: FDA-Public Use
  Company Number: JP-009507513-2008-171422-NL

PATIENT
  Sex: 0
  Weight: .18 kg

DRUGS (1)
  1. FOLLITROPIN BETA [Suspect]
     Indication: PRODUCT USED FOR UNKNOWN INDICATION
     Dosage: 150 IU, QD
     Route: 065
     Dates: start: 20070827, end: 20070831

REACTIONS (2)
  - Anencephaly [Not Recovered/Not Resolved]
  - Eczema [Recovered/Resolved]
